FAERS Safety Report 12835013 (Version 9)
Quarter: 2018Q3

REPORT INFORMATION
  Report Type: Spontaneous
  Country: US (occurrence: US)
  Receive Date: 20161010
  Receipt Date: 20180807
  Transmission Date: 20181010
  Serious: Yes (Hospitalization)
  Sender: FDA-Public Use
  Company Number: US-ACTELION-A-NJ2016-143514

PATIENT
  Age: 73 Year
  Sex: Female
  Weight: 92.97 kg

DRUGS (4)
  1. ORENITRAM [Concomitant]
     Active Substance: TREPROSTINIL
  2. OPSUMIT [Suspect]
     Active Substance: MACITENTAN
     Indication: PULMONARY ARTERIAL HYPERTENSION
     Dosage: 10 MG, QD
     Route: 048
     Dates: start: 20151202
  3. ADCIRCA [Concomitant]
     Active Substance: TADALAFIL
  4. TYVASO [Concomitant]
     Active Substance: TREPROSTINIL

REACTIONS (17)
  - Nasal congestion [Unknown]
  - Vision blurred [Unknown]
  - Dyspnoea [Not Recovered/Not Resolved]
  - Retching [Unknown]
  - Energy increased [Unknown]
  - Chest pain [Unknown]
  - Muscle twitching [Unknown]
  - Cataract [Unknown]
  - Dyspnoea exertional [Unknown]
  - Sinusitis [Unknown]
  - Back pain [Unknown]
  - Tremor [Unknown]
  - Eye pain [Unknown]
  - Vomiting [Unknown]
  - Nausea [Unknown]
  - Asthenopia [Unknown]
  - Oedema peripheral [Unknown]
